FAERS Safety Report 14994813 (Version 21)
Quarter: 2019Q3

REPORT INFORMATION
  Report Type: Spontaneous
  Country: US (occurrence: US)
  Receive Date: 20180611
  Receipt Date: 20190813
  Transmission Date: 20191004
  Serious: Yes (Other)
  Sender: FDA-Public Use
  Company Number: US-PFIZER INC-2018233379

PATIENT
  Age: 73 Year
  Sex: Female
  Weight: 100 kg

DRUGS (26)
  1. IBRANCE [Suspect]
     Active Substance: PALBOCICLIB
     Dosage: 125 MG, 1X/DAY
     Route: 048
     Dates: start: 20180531
  2. IBRANCE [Suspect]
     Active Substance: PALBOCICLIB
     Dosage: 100 MG, CYCLIC (ONCE A DAY FOR 21 DAYS, OFF 7 DAYS)
     Route: 048
  3. IBRANCE [Suspect]
     Active Substance: PALBOCICLIB
     Dosage: 75 MG, UNK
  4. ECOTRIN [Concomitant]
     Active Substance: ASPIRIN
     Indication: PALPITATIONS
     Dosage: 81 MG, 1X/DAY
     Route: 048
  5. PRILOSEC [Concomitant]
     Active Substance: OMEPRAZOLE MAGNESIUM
     Indication: GASTROOESOPHAGEAL REFLUX DISEASE
     Dosage: 20 MG, AS NEEDED
     Route: 048
     Dates: start: 2015
  6. LOSARTAN. [Concomitant]
     Active Substance: LOSARTAN
     Indication: BLOOD PRESSURE ABNORMAL
     Dosage: 50 MG, 1X/DAY
     Route: 048
  7. IRBESARTAN. [Concomitant]
     Active Substance: IRBESARTAN
     Indication: HYPERTENSION
     Dosage: 125 MG, UNK
  8. LIPITOR [Concomitant]
     Active Substance: ATORVASTATIN CALCIUM
     Indication: BLOOD CHOLESTEROL ABNORMAL
     Dosage: 10 MG, 1X/DAY
     Route: 048
  9. ATORVASTATIN [Concomitant]
     Active Substance: ATORVASTATIN
     Indication: BLOOD CHOLESTEROL INCREASED
     Dosage: 10 MG, ALTERNATE DAY (EVERY OTHER DAY BY MOUTH)
     Route: 048
  10. IRBESARTAN. [Concomitant]
     Active Substance: IRBESARTAN
     Dosage: 75 MG, UNK
  11. LETROZOLE. [Concomitant]
     Active Substance: LETROZOLE
     Indication: BREAST CANCER STAGE IV
     Dosage: 2.5 MG, 1X/DAY
     Route: 048
     Dates: start: 2017
  12. LETROZOLE. [Concomitant]
     Active Substance: LETROZOLE
     Dosage: 2.5 MG, 1X/DAY
     Route: 048
     Dates: start: 20180523
  13. METOPROLOL. [Concomitant]
     Active Substance: METOPROLOL
     Indication: CARDIAC DISORDER
  14. ASPIRIN [ACETYLSALICYLIC ACID] [Concomitant]
     Active Substance: ASPIRIN
     Dosage: 81 MG, 1X/DAY
     Route: 048
  15. IBRANCE [Suspect]
     Active Substance: PALBOCICLIB
     Indication: BREAST CANCER METASTATIC
     Dosage: 75 MG, CYCLIC (ONCE A DAY BY MOUTH FOR 21 DAYS WITH 7 DAYS OFF)
     Route: 048
     Dates: start: 2017
  16. IBRANCE [Suspect]
     Active Substance: PALBOCICLIB
     Dosage: UNK, CYCLIC (21 DAYS AND I AM OFF 7 DAYS, ONCE A DAY)
     Route: 048
     Dates: start: 201805
  17. OMEPRAZOLE. [Concomitant]
     Active Substance: OMEPRAZOLE
     Indication: REFLUX GASTRITIS
     Dosage: 20 MG, ALTERNATE DAY (EVERY OTHER DAY)
     Route: 048
  18. IRBESARTAN. [Concomitant]
     Active Substance: IRBESARTAN
     Dosage: 150 MG, 1X/DAY [WITH WATER]
     Route: 048
  19. IBRANCE [Suspect]
     Active Substance: PALBOCICLIB
     Dosage: UNK [ONCE]
  20. METOPROLOL. [Concomitant]
     Active Substance: METOPROLOL
     Indication: PALPITATIONS
     Dosage: 25 MG, 1X/DAY
     Route: 048
  21. LIPITOR [Concomitant]
     Active Substance: ATORVASTATIN CALCIUM
     Dosage: 10 MG, ALTERNATE DAY, [EVERY OTHER DAY BY MOUTH]
     Route: 048
  22. HYDROCHLOROTHIAZIDE. [Concomitant]
     Active Substance: HYDROCHLOROTHIAZIDE
     Indication: BLOOD PRESSURE ABNORMAL
     Dosage: 25 MG, 1X/DAY
     Route: 048
  23. VITAMIN D3 [Concomitant]
     Active Substance: CHOLECALCIFEROL
     Indication: BLOOD CALCIUM ABNORMAL
     Dosage: 2000 IU, 1X/DAY
     Route: 048
  24. VALSARTAN. [Concomitant]
     Active Substance: VALSARTAN
     Indication: BLOOD PRESSURE ABNORMAL
     Dosage: 80 MG, 1X/DAY
     Route: 048
  25. IBRANCE [Suspect]
     Active Substance: PALBOCICLIB
     Indication: BREAST CANCER FEMALE
     Dosage: UNK
  26. MELOXICAM. [Concomitant]
     Active Substance: MELOXICAM
     Indication: ARTHRITIS
     Dosage: 15 MG, AS NEEDED (1 PILL)
     Route: 048
     Dates: start: 2015

REACTIONS (26)
  - Oropharyngeal pain [Recovered/Resolved]
  - Headache [Unknown]
  - Fatigue [Unknown]
  - Therapeutic response unexpected [Unknown]
  - Pre-existing condition improved [Unknown]
  - Neutrophil count decreased [Unknown]
  - Neoplasm progression [Not Recovered/Not Resolved]
  - Pruritus [Unknown]
  - Peripheral swelling [Unknown]
  - Chest pain [Unknown]
  - Full blood count decreased [Unknown]
  - Hot flush [Unknown]
  - Skin exfoliation [Not Recovered/Not Resolved]
  - Pyrexia [Recovered/Resolved]
  - White blood cells urine positive [Unknown]
  - Feeling cold [Not Recovered/Not Resolved]
  - Chills [Unknown]
  - Body height decreased [Unknown]
  - Ageusia [Unknown]
  - Hyperhidrosis [Unknown]
  - Blood urine [Unknown]
  - Leukopenia [Not Recovered/Not Resolved]
  - Memory impairment [Not Recovered/Not Resolved]
  - Oral disorder [Recovered/Resolved]
  - Dysgeusia [Unknown]
  - Hypothermia [Recovered/Resolved]

NARRATIVE: CASE EVENT DATE: 201805
